FAERS Safety Report 4284783-X (Version None)
Quarter: 2004Q1

REPORT INFORMATION
  Report Type: 
  Country: None (occurrence: None)
  Receive Date: 20040202
  Receipt Date: 20040121
  Transmission Date: 20041129
  Serious: Yes (Life-Threatening, Hospitalization)
  Sender: FDA-Public Use
  Company Number: 2004AP00302

PATIENT
  Age: 40 Year
  Sex: Female
  Weight: 110 kg

DRUGS (3)
  1. IRESSA [Suspect]
     Indication: OVARIAN CANCER
     Dosage: 250 MG DAILY PO
     Route: 048
     Dates: start: 20031229, end: 20040109
  2. OXALIPLATIN [Suspect]
     Indication: OVARIAN CANCER
     Dates: start: 20040105, end: 20040105
  3. NAVELBINE [Suspect]
     Indication: OVARIAN CANCER
     Dates: start: 20040105, end: 20040105

REACTIONS (5)
  - ABDOMINAL PAIN UPPER [None]
  - DIARRHOEA [None]
  - INTESTINAL OBSTRUCTION [None]
  - MALIGNANT ASCITES [None]
  - PAIN [None]
